FAERS Safety Report 14423553 (Version 2)
Quarter: 2018Q2

REPORT INFORMATION
  Report Type: Spontaneous
  Country: US (occurrence: US)
  Receive Date: 20180123
  Receipt Date: 20180502
  Transmission Date: 20180711
  Serious: No
  Sender: FDA-Public Use
  Company Number: US-PFIZER INC-2018026943

PATIENT
  Age: 13 Year
  Sex: Male

DRUGS (2)
  1. EUCRISA [Suspect]
     Active Substance: CRISABOROLE
     Indication: DERMATITIS ATOPIC
     Dosage: UNK, 2X/DAY
     Route: 061
     Dates: start: 20171128, end: 20180102
  2. VERDESO [Concomitant]
     Active Substance: DESONIDE
     Indication: DERMATITIS ATOPIC
     Dosage: UNK, CYCLIC (ON 2WEEKS OFF 2 WEEKS/ +AA BID FOR 2WEEKS)
     Route: 061
     Dates: start: 20160831

REACTIONS (4)
  - Application site vesicles [Unknown]
  - Application site erythema [Unknown]
  - Application site pain [Unknown]
  - Application site pain [Recovered/Resolved]

NARRATIVE: CASE EVENT DATE: 201712
